FAERS Safety Report 6557151-5 (Version None)
Quarter: 2010Q1

REPORT INFORMATION
  Report Type: 
  Country: None (occurrence: None)
  Receive Date: 20100126
  Receipt Date: 20100113
  Transmission Date: 20100710
  Serious: Yes (Life-Threatening, Hospitalization)
  Sender: FDA-Public Use
  Company Number: 004500

PATIENT
  Sex: Female
  Weight: 61.2 kg

DRUGS (8)
  1. ISOSORBIDE MONONITRATE [Suspect]
     Indication: MEDICAL DEVICE COMPLICATION
     Dosage: 30 MG QD ORAL, 30 MG BID ORAL, 30 MG QD ORAL
     Route: 048
     Dates: start: 20000101, end: 20030101
  2. ISOSORBIDE MONONITRATE [Suspect]
     Indication: MEDICAL DEVICE COMPLICATION
     Dosage: 30 MG QD ORAL, 30 MG BID ORAL, 30 MG QD ORAL
     Route: 048
     Dates: start: 20030101, end: 20090101
  3. ISOSORBIDE MONONITRATE [Suspect]
     Indication: MEDICAL DEVICE COMPLICATION
     Dosage: 30 MG QD ORAL, 30 MG BID ORAL, 30 MG QD ORAL
     Route: 048
     Dates: start: 20090101
  4. DILTIAZEM HCL [Concomitant]
  5. LIPITOR [Concomitant]
  6. ZETIA [Concomitant]
  7. XANAX [Concomitant]
  8. PLAVIX [Concomitant]

REACTIONS (8)
  - BLOOD PRESSURE DECREASED [None]
  - CARDIO-RESPIRATORY ARREST [None]
  - CAROTID ARTERY OCCLUSION [None]
  - LOWER RESPIRATORY TRACT INFECTION [None]
  - MYOCARDIAL INFARCTION [None]
  - OROPHARYNGEAL PAIN [None]
  - PNEUMOTHORAX TRAUMATIC [None]
  - POLYCYTHAEMIA VERA [None]
